FAERS Safety Report 19143570 (Version 1)
Quarter: 2021Q2

REPORT INFORMATION
  Report Type: Report from Study
  Country: None (occurrence: US)
  Receive Date: 20210415
  Receipt Date: 20210415
  Transmission Date: 20210717
  Serious: Yes (Hospitalization)
  Sender: FDA-Public Use
  Company Number: US-ABBVIE-21K-163-3854782-00

PATIENT
  Age: 62 Year
  Sex: Female

DRUGS (4)
  1. SYNTHROID [Suspect]
     Active Substance: LEVOTHYROXINE SODIUM
     Dosage: FOR 6 WEEKS
     Route: 065
     Dates: start: 2020, end: 2020
  2. SYNTHROID [Suspect]
     Active Substance: LEVOTHYROXINE SODIUM
     Indication: PRODUCT USED FOR UNKNOWN INDICATION
     Route: 065
     Dates: end: 202009
  3. SYNTHROID [Suspect]
     Active Substance: LEVOTHYROXINE SODIUM
     Dosage: FOR 6 WEEKS
     Route: 065
     Dates: start: 202103
  4. SYNTHROID [Suspect]
     Active Substance: LEVOTHYROXINE SODIUM
     Dosage: FOR 6 WEEKS
     Route: 065
     Dates: start: 2020, end: 2020

REACTIONS (8)
  - Pneumonia [Unknown]
  - Feeding disorder [Unknown]
  - COVID-19 [Unknown]
  - Weight decreased [Unknown]
  - Endocrine disorder [Unknown]
  - Hyperthyroidism [Unknown]
  - Insomnia [Unknown]
  - Tremor [Unknown]

NARRATIVE: CASE EVENT DATE: 20200831
